FAERS Safety Report 7099322-8 (Version None)
Quarter: 2010Q4

REPORT INFORMATION
  Report Type: 
  Country: None (occurrence: None)
  Receive Date: 20101112
  Receipt Date: 20101108
  Transmission Date: 20110411
  Serious: Yes (Other)
  Sender: FDA-Public Use
  Company Number: US-GILEAD-2010-0033391

PATIENT
  Age: 60 Year
  Sex: Female

DRUGS (1)
  1. LETAIRIS [Suspect]
     Indication: PULMONARY ARTERIAL HYPERTENSION
     Dates: start: 20100827

REACTIONS (4)
  - ASTHENIA [None]
  - FALL [None]
  - OEDEMA PERIPHERAL [None]
  - TRANSFUSION [None]
